FAERS Safety Report 9498192 (Version 4)
Quarter: 2013Q4

REPORT INFORMATION
  Report Type: Report from Study
  Country: AR (occurrence: AR)
  Receive Date: 20130904
  Receipt Date: 20131002
  Transmission Date: 20140711
  Serious: Yes (Disabling)
  Sender: FDA-Public Use
  Company Number: AR-ROCHE-1269097

PATIENT
  Age: 53 Year
  Sex: Female
  Weight: 49 kg

DRUGS (2)
  1. ACTEMRA [Suspect]
     Indication: RHEUMATOID ARTHRITIS
     Route: 042
     Dates: start: 201010
  2. METHOTREXATE [Concomitant]
     Route: 048

REACTIONS (10)
  - Ophthalmic herpes zoster [Unknown]
  - Corneal abscess [Unknown]
  - Endophthalmitis [Unknown]
  - Blindness unilateral [Not Recovered/Not Resolved]
  - Herpes ophthalmic [Recovered/Resolved with Sequelae]
  - Eye infection bacterial [Recovered/Resolved with Sequelae]
  - Haematuria [Unknown]
  - Proteinuria [Unknown]
  - Blood urea increased [Unknown]
  - Blood creatinine increased [Unknown]
